FAERS Safety Report 15056245 (Version 3)
Quarter: 2018Q3

REPORT INFORMATION
  Report Type: Spontaneous
  Country: US (occurrence: US)
  Receive Date: 20180622
  Receipt Date: 20180719
  Transmission Date: 20181010
  Serious: No
  Sender: FDA-Public Use
  Company Number: PHEH2018US024981

PATIENT
  Age: 75 Year
  Sex: Male

DRUGS (1)
  1. VOTRIENT [Suspect]
     Active Substance: PAZOPANIB HYDROCHLORIDE
     Indication: RENAL CANCER
     Dosage: 4 DF, QD
     Route: 048
     Dates: start: 20180518

REACTIONS (8)
  - Paranasal sinus discomfort [Unknown]
  - Oral pain [Unknown]
  - Swollen tongue [Unknown]
  - Stomatitis [Unknown]
  - Glossitis [Unknown]
  - Sinusitis [Unknown]
  - Infection [Unknown]
  - Sinus congestion [Unknown]

NARRATIVE: CASE EVENT DATE: 20180523
